FAERS Safety Report 9266972 (Version 1)
Quarter: 2013Q2

REPORT INFORMATION
  Report Type: Spontaneous
  Country: US (occurrence: US)
  Receive Date: 20130502
  Receipt Date: 20130502
  Transmission Date: 20140414
  Serious: No
  Sender: FDA-Public Use
  Company Number: US-PFIZER INC-2013135424

PATIENT
  Age: 5 Year
  Sex: Male

DRUGS (1)
  1. QUILLIVANT XR [Suspect]
     Dosage: UNK, 1X/DAY
     Dates: start: 20130422, end: 20130426

REACTIONS (2)
  - Abdominal pain upper [Unknown]
  - Vomiting [Unknown]
